FAERS Safety Report 7688939-5 (Version None)
Quarter: 2011Q3

REPORT INFORMATION
  Report Type: 
  Country: None (occurrence: None)
  Receive Date: 20110817
  Receipt Date: 20110809
  Transmission Date: 20111222
  Serious: Yes (Hospitalization)
  Sender: FDA-Public Use
  Company Number: PHHO2011IT13668

PATIENT
  Sex: Male
  Weight: 80 kg

DRUGS (1)
  1. EVEROLIMUS [Suspect]
     Indication: HEART TRANSPLANT
     Dosage: 0.75 MG, UNK
     Dates: start: 20110709, end: 20110726

REACTIONS (1)
  - HYPOALBUMINAEMIA [None]
